FAERS Safety Report 9551682 (Version 1)
Quarter: 2013Q3

REPORT INFORMATION
  Report Type: Spontaneous
  Country: JP (occurrence: JP)
  Receive Date: 20130925
  Receipt Date: 20130925
  Transmission Date: 20140515
  Serious: Yes (Other)
  Sender: FDA-Public Use
  Company Number: JP-JNJFOC-20130911940

PATIENT
  Sex: 0

DRUGS (2)
  1. FENTANYL CITRATE [Suspect]
     Indication: ANAESTHESIA
     Route: 065
  2. REMIFENTANIL HYDROCHLORIDE [Suspect]
     Indication: ANAESTHESIA
     Route: 042

REACTIONS (4)
  - Bulbar palsy [Recovering/Resolving]
  - Eyelid ptosis [Recovering/Resolving]
  - Dyskinesia [Recovering/Resolving]
  - Muscular weakness [Recovering/Resolving]
